FAERS Safety Report 16424824 (Version 1)
Quarter: 2019Q2

REPORT INFORMATION
  Report Type: Spontaneous
  Country: DE (occurrence: DE)
  Receive Date: 20190613
  Receipt Date: 20190613
  Transmission Date: 20190711
  Serious: Yes (Other)
  Sender: FDA-Public Use
  Company Number: DE-ALK-ABELLO A/S-2019AA002047

PATIENT

DRUGS (2)
  1. ACARIZAX 12 SQ-HDM [Suspect]
     Active Substance: DERMATOPHAGOIDES FARINAE\DERMATOPHAGOIDES PTERONYSSINUS
     Indication: PRODUCT USED FOR UNKNOWN INDICATION
     Dosage: 12 SQ-HDM
     Dates: start: 20190523, end: 20190523
  2. THYROXIN [Concomitant]
     Active Substance: LEVOTHYROXINE
     Indication: HYPOTHYROIDISM
     Route: 048

REACTIONS (11)
  - Nasal congestion [Recovered/Resolved]
  - Ocular hyperaemia [Recovered/Resolved]
  - Ear pruritus [Recovered/Resolved]
  - Discomfort [Recovered/Resolved]
  - Swelling face [Recovered/Resolved]
  - Drug monitoring procedure not performed [Recovered/Resolved]
  - General physical condition decreased [Recovered/Resolved]
  - Mouth swelling [Recovered/Resolved]
  - Oral discomfort [Recovered/Resolved]
  - Lip swelling [Recovered/Resolved]
  - Dysphagia [Recovered/Resolved]

NARRATIVE: CASE EVENT DATE: 20190523
